FAERS Safety Report 14227383 (Version 2)
Quarter: 2017Q4

REPORT INFORMATION
  Report Type: Spontaneous
  Country: US (occurrence: US)
  Receive Date: 20171127
  Receipt Date: 20171128
  Transmission Date: 20180321
  Serious: Yes (Other)
  Sender: FDA-Public Use
  Company Number: US-PFIZER INC-2017505455

PATIENT
  Age: 81 Year
  Sex: Female
  Weight: 70 kg

DRUGS (7)
  1. XANAX [Concomitant]
     Active Substance: ALPRAZOLAM
     Indication: ANXIETY
     Dosage: 0.25 MG, AS NEEDED (4 TIMES A DAY AS NEEDED)
     Route: 048
  2. ZANAFLEX [Concomitant]
     Active Substance: TIZANIDINE HYDROCHLORIDE
     Indication: MUSCLE SPASMS
     Dosage: 4 MG, 1X/DAY (ONCE AT BEDTIME)
  3. SEROQUEL [Concomitant]
     Active Substance: QUETIAPINE FUMARATE
     Dosage: 25 MG, 1X/DAY (ONCE AT BEDTIME)
  4. OMEPRAZOLE. [Concomitant]
     Active Substance: OMEPRAZOLE
     Indication: GASTROOESOPHAGEAL REFLUX DISEASE
     Dosage: UNK UNK, 1X/DAY (ONCE DAILY)
  5. OXYCODONE/APAP [Concomitant]
     Active Substance: ACETAMINOPHEN\OXYCODONE HYDROCHLORIDE
     Indication: PAIN
     Dosage: 1 DF, 3X/DAY (OXYCODONE HYDROCHLORIDE: 10 MG; PARACETAMOL :325 MG)
     Route: 048
  6. ZOLOFT [Concomitant]
     Active Substance: SERTRALINE HYDROCHLORIDE
     Indication: DEPRESSION
     Dosage: 100 MG, 1X/DAY (ONCE DAILY)
  7. ATROPINE SULFATE/DIPHENOXYLATE HYDROCHLORIDE [Suspect]
     Active Substance: ATROPINE SULFATE\DIPHENOXYLATE HYDROCHLORIDE
     Indication: DIARRHOEA
     Dosage: 5 MG, AS NEEDED (TWO TABLETS BY MOUTH 4 TIMES DAILY AS NEEDED)
     Route: 048
     Dates: start: 201611

REACTIONS (14)
  - Faeces discoloured [Unknown]
  - Proctalgia [Unknown]
  - Palpitations [Unknown]
  - Haematochezia [Unknown]
  - Large intestine polyp [Unknown]
  - Cholelithiasis [Unknown]
  - Cyst [Unknown]
  - Cystitis [Unknown]
  - Tooth fracture [Unknown]
  - Nephrolithiasis [Unknown]
  - Clostridium difficile colitis [Recovered/Resolved]
  - Drug ineffective [Unknown]
  - Fungal infection [Unknown]
  - Product use issue [Unknown]
